FAERS Safety Report 9215750 (Version 3)
Quarter: 2013Q4

REPORT INFORMATION
  Report Type: Report from Study
  Country: FR (occurrence: FR)
  Receive Date: 20130408
  Receipt Date: 20131118
  Transmission Date: 20140711
  Serious: Yes (Hospitalization)
  Sender: FDA-Public Use
  Company Number: FR-BIOGENIDEC-2013BI031244

PATIENT
  Age: 37 Year
  Sex: Female

DRUGS (4)
  1. TYSABRI [Suspect]
     Indication: MULTIPLE SCLEROSIS
     Route: 042
     Dates: start: 20081014, end: 20110930
  2. BACLOFEN [Concomitant]
     Route: 048
  3. ANXIOLYTICS [Concomitant]
  4. ANTICOAGULANT [Concomitant]
     Route: 048

REACTIONS (1)
  - Mental disorder [Recovered/Resolved]
